FAERS Safety Report 19878554 (Version 3)
Quarter: 2021Q4

REPORT INFORMATION
  Report Type: Spontaneous
  Country: FR (occurrence: FR)
  Receive Date: 20210924
  Receipt Date: 20211005
  Transmission Date: 20220303
  Serious: Yes (Hospitalization, Other)
  Sender: FDA-Public Use
  Company Number: FR-ASTELLAS-2021US035185

PATIENT
  Age: 80 Year
  Sex: Female

DRUGS (2)
  1. TACROLIMUS [Suspect]
     Active Substance: TACROLIMUS
     Indication: Liver transplant
     Route: 048
  2. TACROLIMUS [Suspect]
     Active Substance: TACROLIMUS
     Route: 048

REACTIONS (3)
  - Toxicity to various agents [Unknown]
  - Chronic kidney disease [Unknown]
  - Breast cancer [Unknown]

NARRATIVE: CASE EVENT DATE: 20050101
